FAERS Safety Report 15688727 (Version 1)
Quarter: 2018Q4

REPORT INFORMATION
  Report Type: Spontaneous
  Country: IN (occurrence: IN)
  Receive Date: 20181205
  Receipt Date: 20181205
  Transmission Date: 20190205
  Serious: Yes (Other)
  Sender: FDA-Public Use
  Company Number: IN-ACCORD-094649

PATIENT
  Age: 54 Year
  Sex: Female

DRUGS (2)
  1. PACLITAXEL/PACLITAXEL LIPOSOME [Suspect]
     Active Substance: PACLITAXEL
     Indication: CERVIX CARCINOMA STAGE III
  2. CARBOPLATIN. [Suspect]
     Active Substance: CARBOPLATIN
     Indication: CERVIX CARCINOMA STAGE III

REACTIONS (7)
  - Dysentery [Unknown]
  - Vocal cord paralysis [Recovering/Resolving]
  - Aspiration [Unknown]
  - Nausea [Unknown]
  - Asthenia [Unknown]
  - Dysgeusia [Unknown]
  - Overdose [Unknown]
